FAERS Safety Report 6517756-4 (Version None)
Quarter: 2009Q4

REPORT INFORMATION
  Report Type: 
  Country: None (occurrence: None)
  Receive Date: 20091218
  Receipt Date: 20091203
  Transmission Date: 20100525
  Serious: Yes (Hospitalization)
  Sender: FDA-Public Use
  Company Number: 002815

PATIENT
  Sex: Female

DRUGS (31)
  1. KEPPRA [Suspect]
     Indication: DRUG USE FOR UNKNOWN INDICATION
     Dosage: (500 MG BID INTRAVENOUS))
     Dates: start: 20090501
  2. REVLIMID [Suspect]
     Indication: MULTIPLE MYELOMA
     Dosage: (ORAL)
     Route: 048
     Dates: start: 20070823, end: 20090601
  3. REVLIMID [Suspect]
     Indication: MULTIPLE MYELOMA
     Dosage: (ORAL)
     Route: 048
     Dates: start: 20090611
  4. REVLIMID [Suspect]
  5. TEGRETOL [Suspect]
     Indication: DRUG USE FOR UNKNOWN INDICATION
     Dosage: (200 MG BID ORAL)
     Route: 048
  6. FENTANYL-100 [Suspect]
     Indication: DRUG USE FOR UNKNOWN INDICATION
     Dosage: (25 ?G 1X/72 HOURS TRANSDERMAL)
     Route: 062
     Dates: end: 20090101
  7. LYRICA [Suspect]
     Indication: NEUROPATHY PERIPHERAL
     Dosage: (30 MG QD)
     Dates: end: 20090101
  8. CYMBALTA [Suspect]
     Indication: DRUG USE FOR UNKNOWN INDICATION
     Dosage: (30 MG QD)
     Dates: end: 20090101
  9. DEXAMETHASONE [Suspect]
     Indication: DRUG USE FOR UNKNOWN INDICATION
     Dosage: (4 MG 1X/WEEK)
     Dates: end: 20090101
  10. VALTREX [Suspect]
     Indication: DRUG USE FOR UNKNOWN INDICATION
     Dosage: (1 G TID)
     Dates: end: 20090101
  11. COUMADIN [Concomitant]
  12. AMLODIPINE [Concomitant]
  13. PATANOL [Concomitant]
  14. ASPIRIN [Concomitant]
  15. HUMALOG [Concomitant]
  16. ELECTROLYTE SOLUTIONS [Concomitant]
  17. ACYCLOVIR [Concomitant]
  18. DALTEPARIN [Concomitant]
  19. SINGULAIR [Concomitant]
  20. NORVASC [Concomitant]
  21. SYNTHROID [Concomitant]
  22. ZYRTEC [Concomitant]
  23. CLARITIN /00917501/ [Concomitant]
  24. CALCIUM [Concomitant]
  25. OMEPRAZOLE [Concomitant]
  26. POTASSIUM CHLORIDE [Concomitant]
  27. MAALOX /00091001/ [Concomitant]
  28. MILK OF MAGNESIA TAB [Concomitant]
  29. TYLENOL (CAPLET) [Concomitant]
  30. DOCUSATE [Concomitant]
  31. NEXIUM [Concomitant]

REACTIONS (25)
  - APRAXIA [None]
  - ARTHROPATHY [None]
  - CEREBROVASCULAR ACCIDENT [None]
  - CONVULSION [None]
  - DIPLOPIA [None]
  - DRUG TOXICITY [None]
  - DYSURIA [None]
  - ENCEPHALITIS HERPES [None]
  - FALL [None]
  - HEAD INJURY [None]
  - HYPOKALAEMIA [None]
  - INCORRECT DOSE ADMINISTERED [None]
  - MEMORY IMPAIRMENT [None]
  - MENTAL STATUS CHANGES [None]
  - METABOLIC ENCEPHALOPATHY [None]
  - NEUROPATHY PERIPHERAL [None]
  - NYSTAGMUS [None]
  - PARANOIA [None]
  - PERSONALITY CHANGE [None]
  - PROTHROMBIN TIME PROLONGED [None]
  - SPEECH DISORDER [None]
  - TRANSIENT ISCHAEMIC ATTACK [None]
  - URINARY INCONTINENCE [None]
  - URINE ODOUR ABNORMAL [None]
  - WHITE BLOOD CELL COUNT DECREASED [None]
